FAERS Safety Report 6509839-X (Version None)
Quarter: 2009Q4

REPORT INFORMATION
  Report Type: 
  Country: None (occurrence: None)
  Receive Date: 20091222
  Receipt Date: 20091214
  Transmission Date: 20100525
  Serious: Yes (Hospitalization, Other)
  Sender: FDA-Public Use
  Company Number: US-JNJFOC-20091105681

PATIENT
  Sex: Male
  Weight: 106.3 kg

DRUGS (3)
  1. REMICADE [Suspect]
     Dosage: LAST INFUSION; DURATION OF THERAPY: 24 MONTHS
     Route: 042
     Dates: end: 20090824
  2. REMICADE [Suspect]
     Indication: CROHN'S DISEASE
     Route: 042
     Dates: end: 20090824
  3. STEROIDS NOS [Suspect]
     Indication: DRUG USE FOR UNKNOWN INDICATION

REACTIONS (4)
  - HYPERTENSION [None]
  - INTERSTITIAL LUNG DISEASE [None]
  - REVERSIBLE POSTERIOR LEUKOENCEPHALOPATHY SYNDROME [None]
  - SUBARACHNOID HAEMORRHAGE [None]
